FAERS Safety Report 7675747-4 (Version None)
Quarter: 2011Q3

REPORT INFORMATION
  Report Type: 
  Country: None (occurrence: None)
  Receive Date: 20110810
  Receipt Date: 20110517
  Transmission Date: 20111222
  Serious: No
  Sender: FDA-Public Use
  Company Number: US-TYCO HEALTHCARE/MALLINCKRODT-T201101089

PATIENT
  Age: 70 Year
  Sex: Female

DRUGS (3)
  1. JANUVIA [Concomitant]
  2. METFORMIN HCL [Concomitant]
  3. PENNSAID [Suspect]
     Indication: ARTHRALGIA
     Dosage: 10-15 GTT, 1 DOSE APPLIED
     Route: 061
     Dates: start: 20110504, end: 20110504

REACTIONS (1)
  - HYPOAESTHESIA [None]
